FAERS Safety Report 20319084 (Version 3)
Quarter: 2022Q2

REPORT INFORMATION
  Report Type: Spontaneous
  Country: US (occurrence: US)
  Receive Date: 20220110
  Receipt Date: 20220428
  Transmission Date: 20220721
  Serious: Yes (Death, Hospitalization, Other)
  Sender: FDA-Public Use
  Company Number: US-TEVA-2022-US-1996687

PATIENT
  Age: 69 Year
  Sex: Female
  Weight: 90.71 kg

DRUGS (9)
  1. HYDROCHLOROTHIAZIDE\VALSARTAN [Suspect]
     Active Substance: HYDROCHLOROTHIAZIDE\VALSARTAN
     Indication: Hypertension
     Dosage: 320/25MG
     Route: 065
     Dates: start: 20140118, end: 20150917
  2. HYDROCHLOROTHIAZIDE\VALSARTAN [Suspect]
     Active Substance: HYDROCHLOROTHIAZIDE\VALSARTAN
     Dosage: 320/25MG
     Route: 065
     Dates: start: 20151201, end: 20170417
  3. HYDROCHLOROTHIAZIDE\VALSARTAN [Suspect]
     Active Substance: HYDROCHLOROTHIAZIDE\VALSARTAN
     Indication: Hypertension
     Dosage: 320/25MG
     Route: 065
     Dates: start: 20170728, end: 20180209
  4. KLOR-CON [Concomitant]
     Active Substance: POTASSIUM CHLORIDE
     Indication: Hypokalaemia
     Dosage: 40 MILLIGRAM DAILY;
     Route: 048
     Dates: start: 2012, end: 2018
  5. DIOVAN HCT [Concomitant]
     Active Substance: HYDROCHLOROTHIAZIDE\VALSARTAN
     Dosage: 320/25MG
     Route: 065
  6. NORVASC [Concomitant]
     Active Substance: AMLODIPINE BESYLATE
     Route: 065
  7. POTASSIUM CHLORIDE [Concomitant]
     Active Substance: POTASSIUM CHLORIDE
     Route: 065
  8. LANTUS [Concomitant]
     Active Substance: INSULIN GLARGINE
     Dosage: 100 UNIT/ML (3ML), 15 UNITS EVERY EVENING
     Route: 065
  9. PROTONIX [Concomitant]
     Active Substance: PANTOPRAZOLE SODIUM
     Route: 048

REACTIONS (11)
  - Cardiac failure [Fatal]
  - Pancreatic carcinoma metastatic [Fatal]
  - Hepatic cancer stage IV [Unknown]
  - Jaundice cholestatic [Recovered/Resolved]
  - Hyperglycaemia [Unknown]
  - Ascites [Unknown]
  - Cellulitis [Recovered/Resolved]
  - Cellulitis [Unknown]
  - Gastrointestinal haemorrhage [Unknown]
  - Pyrexia [Recovered/Resolved]
  - Deep vein thrombosis [Unknown]

NARRATIVE: CASE EVENT DATE: 20180301
